FAERS Safety Report 11673801 (Version 1)
Quarter: 2015Q4

REPORT INFORMATION
  Report Type: Spontaneous
  Country: FR (occurrence: FR)
  Receive Date: 20151028
  Receipt Date: 20151028
  Transmission Date: 20160304
  Serious: Yes (Hospitalization)
  Sender: FDA-Public Use
  Company Number: FR-MYLANLABS-2015M1036536

PATIENT

DRUGS (3)
  1. FONDAPARINUX [Suspect]
     Active Substance: FONDAPARINUX
     Indication: OFF LABEL USE
  2. FONDAPARINUX [Suspect]
     Active Substance: FONDAPARINUX
     Indication: PERIPHERAL ARTERIAL OCCLUSIVE DISEASE
     Dosage: UNK
     Dates: start: 201510
  3. KARDEGIC [Concomitant]
     Active Substance: ASPIRIN LYSINE
     Indication: PRODUCT USED FOR UNKNOWN INDICATION
     Dosage: NOT PROVIDED
     Route: 065

REACTIONS (2)
  - Haematoma [Unknown]
  - Off label use [Unknown]

NARRATIVE: CASE EVENT DATE: 201510
